FAERS Safety Report 21160026 (Version 1)
Quarter: 2022Q3

REPORT INFORMATION
  Report Type: Spontaneous
  Country: US (occurrence: None)
  Receive Date: 20220801
  Receipt Date: 20220801
  Transmission Date: 20221027
  Serious: Yes (Other)
  Sender: FDA-Public Use
  Company Number: None

PATIENT
  Age: 63 Year
  Sex: Female
  Weight: 105.75 kg

DRUGS (1)
  1. PAXLOVID [Suspect]
     Active Substance: NIRMATRELVIR\RITONAVIR

REACTIONS (2)
  - Contusion [None]
  - Hepatic enzyme increased [None]

NARRATIVE: CASE EVENT DATE: 20220801
